FAERS Safety Report 4979494-9 (Version None)
Quarter: 2006Q2

REPORT INFORMATION
  Report Type: 
  Country: None (occurrence: None)
  Receive Date: 20060418
  Receipt Date: 20060407
  Transmission Date: 20061013
  Serious: Yes (Disabling)
  Sender: FDA-Public Use
  Company Number: RS005916-F

PATIENT
  Sex: Male

DRUGS (2)
  1. RABEPRAZOLE SODIUM [Suspect]
     Dosage: 10 MG, 1 IN 1 D, ORAL
     Route: 048
     Dates: start: 20060306, end: 20060307
  2. PIROXICAM [Suspect]
     Indication: ARTHRALGIA
     Dosage: 20 MG, ORAL
     Route: 048
     Dates: start: 20060306, end: 20060307

REACTIONS (4)
  - EYE OPERATION COMPLICATION [None]
  - RETINAL HAEMORRHAGE [None]
  - RETINAL TEAR [None]
  - VISION BLURRED [None]
